FAERS Safety Report 4969094-9 (Version None)
Quarter: 2006Q2

REPORT INFORMATION
  Report Type: 
  Country: None (occurrence: None)
  Receive Date: 20060405
  Receipt Date: 20060327
  Transmission Date: 20061013
  Serious: Yes (Other)
  Sender: FDA-Public Use
  Company Number: 223333

PATIENT
  Age: 47 Year

DRUGS (6)
  1. XOLAIR [Suspect]
     Indication: ASTHMA
     Dosage: 300 MG, Q2W, SUBCUTANEOUS
     Route: 058
     Dates: start: 20060106, end: 20060308
  2. MEDROL ACETATE [Concomitant]
  3. ADVAIR DISKUS 100/50 [Concomitant]
  4. SINGULAIR [Concomitant]
  5. FLOVENT [Concomitant]
  6. XOPENEX [Concomitant]

REACTIONS (8)
  - ALLERGIC GRANULOMATOUS ANGIITIS [None]
  - FATIGUE [None]
  - MYALGIA [None]
  - NASOPHARYNGITIS [None]
  - NECK PAIN [None]
  - NEUTROPHIL COUNT DECREASED [None]
  - PAIN IN EXTREMITY [None]
  - TELANGIECTASIA [None]
